FAERS Safety Report 8130033-3 (Version None)
Quarter: 2012Q1

REPORT INFORMATION
  Report Type: 
  Country: None (occurrence: None)
  Receive Date: 20120210
  Receipt Date: 20120202
  Transmission Date: 20120608
  Serious: Yes (Other)
  Sender: FDA-Public Use
  Company Number: CA-ROCHE-1006027

PATIENT
  Sex: Female

DRUGS (6)
  1. NEXIUM [Concomitant]
  2. ZOLOFT [Concomitant]
  3. XOLAIR [Suspect]
     Indication: ASTHMA
     Route: 058
     Dates: start: 20100225
  4. SERTRALINE HYDROCHLORIDE [Concomitant]
  5. XOLAIR [Suspect]
     Dates: start: 20111110
  6. ACETAMINOPHEN [Suspect]

REACTIONS (11)
  - BLOOD PRESSURE INCREASED [None]
  - GLOSSODYNIA [None]
  - RASH PRURITIC [None]
  - PRURITUS [None]
  - SWELLING [None]
  - HEART RATE INCREASED [None]
  - PYREXIA [None]
  - UPPER-AIRWAY COUGH SYNDROME [None]
  - PRODUCTIVE COUGH [None]
  - FIBROMYALGIA [None]
  - ERYTHEMA [None]
